FAERS Safety Report 15952413 (Version 2)
Quarter: 2019Q1

REPORT INFORMATION
  Report Type: Spontaneous
  Country: US (occurrence: US)
  Receive Date: 20190211
  Receipt Date: 20190312
  Transmission Date: 20190417
  Serious: Yes (Other)
  Sender: FDA-Public Use
  Company Number: US-JNJFOC-20190131589

PATIENT
  Age: 9 Year
  Sex: Female
  Weight: 39.01 kg

DRUGS (1)
  1. STELARA [Suspect]
     Active Substance: USTEKINUMAB
     Indication: CROHN^S DISEASE
     Route: 058
     Dates: start: 201804

REACTIONS (9)
  - Off label use [Unknown]
  - Product complaint [Unknown]
  - Product dose omission [Unknown]
  - Product outer packaging issue [Unknown]
  - Sinusitis [Unknown]
  - Accidental exposure to product [Unknown]
  - Product use issue [Unknown]
  - Drug ineffective [Unknown]
  - Crohn^s disease [Not Recovered/Not Resolved]

NARRATIVE: CASE EVENT DATE: 201804
